FAERS Safety Report 4690031-9 (Version None)
Quarter: 2005Q2

REPORT INFORMATION
  Report Type: 
  Country: None (occurrence: None)
  Receive Date: 20050614
  Receipt Date: 20050530
  Transmission Date: 20051028
  Serious: Yes (Hospitalization, Other)
  Sender: FDA-Public Use
  Company Number: 2005077754

PATIENT
  Sex: Male

DRUGS (4)
  1. XANAX [Suspect]
     Indication: ILL-DEFINED DISORDER
     Dosage: ORAL
     Route: 048
  2. CLONAZEPAM [Suspect]
     Indication: ILL-DEFINED DISORDER
  3. BETALOC (METOPROLOL TARTRATE) [Suspect]
     Indication: ILL-DEFINED DISORDER
     Dosage: ORAL
     Route: 048
  4. ALCOHOL (ETHANOL) [Suspect]
     Indication: ILL-DEFINED DISORDER

REACTIONS (6)
  - FATIGUE [None]
  - LOSS OF CONSCIOUSNESS [None]
  - MOBILITY DECREASED [None]
  - OVERDOSE [None]
  - PANIC DISORDER [None]
  - SUICIDE ATTEMPT [None]
